FAERS Safety Report 11094671 (Version 2)
Quarter: 2015Q2

REPORT INFORMATION
  Report Type: Spontaneous
  Country: US (occurrence: US)
  Receive Date: 20150506
  Receipt Date: 20150522
  Transmission Date: 20150821
  Serious: Yes (Other)
  Sender: FDA-Public Use
  Company Number: US-PFIZER INC-2014027074

PATIENT
  Age: 55 Year
  Sex: Male
  Weight: 68 kg

DRUGS (2)
  1. LYRICA [Suspect]
     Active Substance: PREGABALIN
     Indication: NEURALGIA
     Dosage: 1800 MG, DAILY
     Dates: start: 2006
  2. LYRICA [Suspect]
     Active Substance: PREGABALIN
     Dosage: REDUCE THE AMOUNT

REACTIONS (8)
  - Intentional product misuse [Unknown]
  - Drug ineffective [Unknown]
  - Pain [Unknown]
  - Eye pain [Unknown]
  - Neuropathy peripheral [Unknown]
  - Ear pain [Unknown]
  - Movement disorder [Unknown]
  - Prescribed overdose [Unknown]

NARRATIVE: CASE EVENT DATE: 2006
